FAERS Safety Report 20648938 (Version 1)
Quarter: 2022Q1

REPORT INFORMATION
  Report Type: Spontaneous
  Country: US (occurrence: None)
  Receive Date: 20220329
  Receipt Date: 20220329
  Transmission Date: 20220424
  Serious: No
  Sender: FDA-Public Use
  Company Number: None

PATIENT
  Age: 72 Year
  Sex: Female
  Weight: 81.9 kg

DRUGS (5)
  1. NORETHINDRONE [Suspect]
     Active Substance: NORETHINDRONE
     Indication: Blood urine present
     Dosage: FREQUENCY : DAILY;?
     Route: 048
     Dates: start: 20220223, end: 20220326
  2. NORETHINDRONE [Suspect]
     Active Substance: NORETHINDRONE
     Indication: Urinary tract polyp
  3. NORVASC [Concomitant]
     Active Substance: AMLODIPINE BESYLATE
  4. Whelchol [Concomitant]
  5. VITAMIN C [Concomitant]
     Active Substance: ASCORBIC ACID

REACTIONS (6)
  - Headache [None]
  - Urine odour abnormal [None]
  - Arthralgia [None]
  - Fatigue [None]
  - Decreased appetite [None]
  - Insomnia [None]

NARRATIVE: CASE EVENT DATE: 20220223
